FAERS Safety Report 20127496 (Version 2)
Quarter: 2021Q4

REPORT INFORMATION
  Report Type: Spontaneous
  Country: FR (occurrence: FR)
  Receive Date: 20211129
  Receipt Date: 20211223
  Transmission Date: 20220303
  Serious: Yes (Life-Threatening, Other)
  Sender: FDA-Public Use
  Company Number: None

PATIENT
  Age: 56 Year
  Sex: Female
  Weight: 62 kg

DRUGS (12)
  1. PATENT BLUE V [Suspect]
     Active Substance: PATENT BLUE V
     Indication: Lymphatic mapping
     Dosage: 1 DOSAGE FORM, TOTAL
     Route: 051
     Dates: start: 20210930, end: 20210930
  2. ACUPAN [Suspect]
     Active Substance: NEFOPAM HYDROCHLORIDE
     Indication: General anaesthesia
     Dosage: 20 MILLIGRAM, TOTAL
     Route: 042
     Dates: start: 20210930, end: 20210930
  3. TRAMADOL HYDROCHLORIDE [Suspect]
     Active Substance: TRAMADOL HYDROCHLORIDE
     Indication: General anaesthesia
     Dosage: 100 MILLIGRAM, TOTAL
     Route: 042
     Dates: start: 20210930, end: 20210930
  4. KETAMINE [Suspect]
     Active Substance: KETAMINE
     Indication: General anaesthesia
     Dosage: 20 MILLIGRAM, TOTAL
     Route: 042
     Dates: start: 20210930, end: 20210930
  5. ATRACURIUM [Suspect]
     Active Substance: ATRACURIUM
     Indication: General anaesthesia
     Dosage: 25 MILLIGRAM, TOTAL
     Route: 042
     Dates: start: 20210930, end: 20210930
  6. XYLOCAINE [Concomitant]
     Active Substance: LIDOCAINE HYDROCHLORIDE
     Indication: General anaesthesia
     Dosage: 1 DOSAGE FORM, TOTAL
     Route: 042
     Dates: start: 20210930, end: 20210930
  7. DEXAMETHASONE [Concomitant]
     Active Substance: DEXAMETHASONE
     Indication: General anaesthesia
     Dosage: 1 DOSAGE FORM, TOTAL
     Route: 042
     Dates: start: 20210930, end: 20210930
  8. DROPERIDOL [Concomitant]
     Active Substance: DROPERIDOL
     Indication: General anaesthesia
     Dosage: 625 MILLIGRAM, TOTAL
     Route: 042
     Dates: start: 20210930, end: 20210930
  9. MIDAZOLAM [Concomitant]
     Active Substance: MIDAZOLAM
     Indication: General anaesthesia
     Dosage: 1 MILLIGRAM, TOTAL
     Route: 042
     Dates: start: 20210930, end: 20210930
  10. ACETAMINOPHEN [Concomitant]
     Active Substance: ACETAMINOPHEN
     Indication: General anaesthesia
     Dosage: 1 DOSAGE FORM, TOTAL
     Route: 042
     Dates: start: 20210930, end: 20210930
  11. REMIFENTANIL HYDROCHLORIDE [Concomitant]
     Active Substance: REMIFENTANIL HYDROCHLORIDE
     Dosage: UNK
     Route: 042
  12. PROPOFOL [Concomitant]
     Active Substance: PROPOFOL
     Dosage: UNK
     Route: 042

REACTIONS (1)
  - Anaphylactic reaction [Recovered/Resolved]

NARRATIVE: CASE EVENT DATE: 20210930
